FAERS Safety Report 20559790 (Version 1)
Quarter: 2022Q1

REPORT INFORMATION
  Report Type: Spontaneous
  Country: FR (occurrence: FR)
  Receive Date: 20220307
  Receipt Date: 20220307
  Transmission Date: 20220423
  Serious: Yes (Death, Hospitalization, Other)
  Sender: FDA-Public Use
  Company Number: FR-NOVARTISPH-NVSC2022FR052345

PATIENT
  Age: 67 Year

DRUGS (20)
  1. OSILODROSTAT [Suspect]
     Active Substance: OSILODROSTAT
     Indication: Product used for unknown indication
     Dosage: 10 MG, BID
     Route: 065
     Dates: start: 20200723, end: 202008
  2. OSILODROSTAT [Suspect]
     Active Substance: OSILODROSTAT
     Dosage: 10 MG, QD
     Route: 065
     Dates: start: 20201214, end: 20210104
  3. OSILODROSTAT [Suspect]
     Active Substance: OSILODROSTAT
     Dosage: 5 MG, QD
     Route: 065
     Dates: start: 20210104, end: 2021
  4. OSILODROSTAT [Suspect]
     Active Substance: OSILODROSTAT
     Dosage: 10 MG, BID
     Route: 065
     Dates: start: 20210416, end: 20210507
  5. OSILODROSTAT [Suspect]
     Active Substance: OSILODROSTAT
     Dosage: 10 MG, 1-0-2
     Route: 065
     Dates: start: 20210507
  6. HYDROCORTISONE [Suspect]
     Active Substance: HYDROCORTISONE
     Indication: Product used for unknown indication
     Dosage: 10 UNK, BID
     Route: 065
     Dates: start: 20200723
  7. HYDROCORTISONE [Suspect]
     Active Substance: HYDROCORTISONE
     Dosage: 10 UNK, BID
     Route: 065
     Dates: start: 20201214
  8. HYDROCORTISONE [Suspect]
     Active Substance: HYDROCORTISONE
     Dosage: 10 MG, BID
     Route: 065
     Dates: start: 20210104
  9. HYDROCORTISONE [Suspect]
     Active Substance: HYDROCORTISONE
     Dosage: 10 MG, BID
     Route: 065
     Dates: start: 20210416
  10. HYDROCORTISONE [Suspect]
     Active Substance: HYDROCORTISONE
     Dosage: 10 MG, BID
     Route: 065
     Dates: start: 20210507
  11. DACARBAZINE [Concomitant]
     Active Substance: DACARBAZINE
     Indication: Product used for unknown indication
     Dosage: UNK, SECOND COURSE
     Route: 065
     Dates: start: 20200728
  12. DACARBAZINE [Concomitant]
     Active Substance: DACARBAZINE
     Dosage: UNK, THIRD COURSE
     Route: 065
     Dates: start: 20200825
  13. DACARBAZINE [Concomitant]
     Active Substance: DACARBAZINE
     Dosage: UNK, FOURTH COURSE
     Route: 065
     Dates: start: 202009
  14. DACARBAZINE [Concomitant]
     Active Substance: DACARBAZINE
     Dosage: UNK, FIFTH COURSE
     Route: 065
     Dates: start: 20201020
  15. DACARBAZINE [Concomitant]
     Active Substance: DACARBAZINE
     Dosage: UNK, SIXTH COURSE
     Route: 065
     Dates: start: 20201126
  16. FLUOROURACIL [Concomitant]
     Active Substance: FLUOROURACIL
     Indication: Product used for unknown indication
     Dosage: UNK, SECOND TREATMENT
     Route: 065
     Dates: start: 20200728
  17. FLUOROURACIL [Concomitant]
     Active Substance: FLUOROURACIL
     Dosage: UNK, THIRD TREATMENT
     Route: 065
     Dates: start: 20200825
  18. FLUOROURACIL [Concomitant]
     Active Substance: FLUOROURACIL
     Dosage: UNK, FOURTH COURSE
     Route: 065
     Dates: start: 202009
  19. FLUOROURACIL [Concomitant]
     Active Substance: FLUOROURACIL
     Dosage: UNK, FIFTH COURSE
     Route: 065
     Dates: start: 20201020
  20. FLUOROURACIL [Concomitant]
     Active Substance: FLUOROURACIL
     Dosage: UNK, SIXTH COURSE
     Route: 065
     Dates: start: 20201126

REACTIONS (3)
  - COVID-19 [Fatal]
  - Adrenal insufficiency [Unknown]
  - Gastrointestinal disorder [Unknown]

NARRATIVE: CASE EVENT DATE: 20200812
